FAERS Safety Report 13981931 (Version 1)
Quarter: 2017Q3

REPORT INFORMATION
  Report Type: Report from Study
  Country: US (occurrence: US)
  Receive Date: 20170918
  Receipt Date: 20170918
  Transmission Date: 20171128
  Serious: No
  Sender: FDA-Public Use
  Company Number: US-ROCHE-1993309

PATIENT
  Age: 51 Year
  Sex: Female
  Weight: 86.26 kg

DRUGS (2)
  1. ROCEPHIN [Suspect]
     Active Substance: CEFTRIAXONE SODIUM
     Indication: CELLULITIS
     Route: 065
     Dates: start: 201709
  2. OCREVUS [Suspect]
     Active Substance: OCRELIZUMAB
     Indication: MULTIPLE SCLEROSIS
     Route: 042
     Dates: start: 20170821

REACTIONS (6)
  - Sinusitis [Recovered/Resolved]
  - Cellulitis [Recovering/Resolving]
  - Off label use [Unknown]
  - Ear infection [Recovered/Resolved]
  - Cellulitis orbital [Recovering/Resolving]
  - Intentional product use issue [Unknown]

NARRATIVE: CASE EVENT DATE: 201709
